FAERS Safety Report 8926694 (Version 1)
Quarter: 2012Q4

REPORT INFORMATION
  Report Type: 
  Country: GB (occurrence: GB)
  Receive Date: 20121127
  Receipt Date: 20121127
  Transmission Date: 20130627
  Serious: Yes (Hospitalization)
  Sender: FDA-Public Use
  Company Number: GB-PFIZER INC-2012294041

PATIENT
  Age: 65 Year
  Sex: Female
  Weight: 70 kg

DRUGS (9)
  1. GENOTROPIN [Suspect]
     Dosage: 1 mg, 1x/day, 7 injections/week
     Route: 058
     Dates: start: 20031001
  2. HYDROCORTISON [Concomitant]
     Indication: ACTH DECREASED
     Dosage: UNK
     Dates: start: 20001220
  3. ATENOLOL [Concomitant]
     Indication: HYPERTENSION
     Dosage: UNK
     Dates: start: 20001220
  4. BENDROFLUMETHIAZIDE [Concomitant]
     Indication: EDEMA
     Dosage: UNK
     Dates: start: 20001220
  5. BENDROFLUMETHIAZIDE [Concomitant]
     Indication: HYPERTENSION
  6. FLUDROCORTISONE [Concomitant]
     Indication: MINERALOCORTICOID DEFICIENCY
     Dosage: UNK
     Dates: start: 20001220
  7. LISINOPRIL [Concomitant]
     Indication: RENOVASCULAR HYPERTENSION
     Dosage: UNK
     Dates: start: 20001220
  8. PREMPAK [Concomitant]
     Indication: UTERINE DISORDER
     Dosage: UNK
     Dates: start: 20001220
  9. THYROXINE [Concomitant]
     Indication: HYPOTHYROIDISM
     Dosage: UNK
     Dates: start: 20001220

REACTIONS (1)
  - Hernia [Unknown]
